FAERS Safety Report 10811979 (Version 2)
Quarter: 2015Q1

REPORT INFORMATION
  Report Type: Spontaneous
  Country: JP (occurrence: None)
  Receive Date: 20150212
  Receipt Date: 20150304
  Transmission Date: 20150721
  Serious: Yes (Life-Threatening, Hospitalization)
  Sender: FDA-Public Use
  Company Number: 2733285

PATIENT
  Age: 77 Year
  Sex: Female
  Weight: 50.6 kg

DRUGS (23)
  1. DEXAMETHASONE SODIUM PHOSPHATE. [Concomitant]
     Active Substance: DEXAMETHASONE SODIUM PHOSPHATE
  2. PALONOSETRON HYDROCHLORIDE [Concomitant]
     Active Substance: PALONOSETRON HYDROCHLORIDE
  3. INSULIN GLARGINE [Concomitant]
     Active Substance: INSULIN GLARGINE
  4. LANSOPRAZOLE. [Concomitant]
     Active Substance: LANSOPRAZOLE
  5. MAOBYSHISAISHINTO [Concomitant]
  6. FEXOFENADINE HYDROCHLORIDE. [Concomitant]
     Active Substance: FEXOFENADINE HYDROCHLORIDE
  7. INSULIN ASPART [Concomitant]
     Active Substance: INSULIN ASPART
  8. GIMERACIL\OTERACIL\TEGAFUR [Concomitant]
     Active Substance: GIMERACIL\OTERACIL\TEGAFUR
  9. AZELNIDIPINE W/OLMESARTAN MEDOXOMIL) [Concomitant]
  10. SENNOSIDE A+B CALCIUM [Concomitant]
     Active Substance: SENNOSIDES A AND B
  11. GLYCERIN. [Concomitant]
     Active Substance: GLYCERIN
  12. AZULENE SODIUM SULFONATE [Concomitant]
     Active Substance: SODIUM GUALENATE
  13. ZOPICLONE [Concomitant]
     Active Substance: ZOPICLONE
  14. DIMEMORFAN PHOSPHATE [Concomitant]
     Active Substance: DIMEMORFAN PHOSPHATE
  15. PACLITAXEL. [Concomitant]
     Active Substance: PACLITAXEL
  16. PREGABALIN. [Concomitant]
     Active Substance: PREGABALIN
  17. METOCLOPRAMIDE. [Concomitant]
     Active Substance: METOCLOPRAMIDE
  18. GEMCITABINE HYDROCHLORIDE. [Suspect]
     Active Substance: GEMCITABINE HYDROCHLORIDE
     Indication: PANCREATIC CARCINOMA
     Dosage: (NOT OTHERWISE SPECIFIED)
     Route: 042
     Dates: start: 20140918
  19. ASPIRIN. [Concomitant]
     Active Substance: ASPIRIN
  20. L-CARBOCYSTEINE [Concomitant]
  21. BROTIZOLAM [Concomitant]
     Active Substance: BROTIZOLAM
  22. PACLITAXEL ALBUMIN [Concomitant]
     Active Substance: PACLITAXEL
  23. LOXOPROFEN SODIUM [Concomitant]
     Active Substance: LOXOPROFEN SODIUM

REACTIONS (5)
  - Interstitial lung disease [None]
  - Rash [None]
  - Neutrophil count decreased [None]
  - Platelet count decreased [None]
  - Haemoptysis [None]

NARRATIVE: CASE EVENT DATE: 20150121
